FAERS Safety Report 21519607 (Version 1)
Quarter: 2022Q4

REPORT INFORMATION
  Report Type: Spontaneous
  Country: US (occurrence: US)
  Receive Date: 20221028
  Receipt Date: 20221028
  Transmission Date: 20230112
  Serious: Yes (Hospitalization)
  Sender: FDA-Public Use
  Company Number: US-MYLANLABS-2022M1118398

PATIENT
  Age: 35 Year
  Sex: Male

DRUGS (13)
  1. ACETAMINOPHEN [Suspect]
     Active Substance: ACETAMINOPHEN
     Indication: Sickle cell anaemia with crisis
     Dosage: 325 MILLIGRAM, Q4H
     Route: 065
  2. CELECOXIB [Suspect]
     Active Substance: CELECOXIB
     Indication: Sickle cell anaemia with crisis
     Dosage: 200 MILLIGRAM, BID
     Route: 065
  3. GABAPENTIN [Suspect]
     Active Substance: GABAPENTIN
     Indication: Sickle cell anaemia with crisis
     Dosage: 300 MILLIGRAM (THREE TIMES DAILY)
     Route: 065
  4. HYDROMORPHONE [Suspect]
     Active Substance: HYDROMORPHONE
     Indication: Sickle cell anaemia with crisis
     Dosage: 4 MILLIGRAM, Q6H
     Route: 048
  5. HYDROMORPHONE [Suspect]
     Active Substance: HYDROMORPHONE
     Dosage: UNK (ESCALATING DOSES FROM 4MG PER DAY TO 16MG PER DAY)
     Route: 048
  6. HYDROMORPHONE [Suspect]
     Active Substance: HYDROMORPHONE
     Indication: Sickle cell anaemia with crisis
     Dosage: UNK (1 TO 2MG EVERY 2 HOURS AS NEEDED)
     Route: 042
  7. HYDROMORPHONE [Suspect]
     Active Substance: HYDROMORPHONE
     Dosage: UNK (INFUSION AT BASAL RATE OF 0.5MG PER HOUR AND 0.4MG EVERY 10 MINUTES BY DEMAND DOSE)
     Route: 065
  8. HYDROMORPHONE [Suspect]
     Active Substance: HYDROMORPHONE
     Dosage: UNK (ESCALATION DOSES FROM AN AVERAGE OF 35MG PER DAY TO AN AVERAGE OF 80MG PER DAY)
     Route: 042
  9. FOLIC ACID [Suspect]
     Active Substance: FOLIC ACID
     Indication: Sickle cell anaemia with crisis
     Dosage: 1 MILLIGRAM, QD
     Route: 065
  10. KETAMINE [Concomitant]
     Active Substance: KETAMINE
     Indication: Hyperaesthesia
     Dosage: UNK (CONTINUOUS INFUSION)
     Route: 065
  11. KETAMINE [Concomitant]
     Active Substance: KETAMINE
     Dosage: UNK (CONTINUOUS INFUSION, WHICH WAS TITRATED UPTO 0.4 MG/KG/H DURING THE NEXT 4 DAYS.)
     Route: 065
  12. DEXTROSE [Concomitant]
     Active Substance: DEXTROSE
     Indication: Product used for unknown indication
     Dosage: UNK (AT 125 ML/HOUR)
     Route: 042
  13. SALINE [Concomitant]
     Active Substance: SODIUM CHLORIDE
     Indication: Product used for unknown indication
     Dosage: UNK (AT 125 ML/HOUR)
     Route: 042

REACTIONS (1)
  - Drug ineffective [Unknown]
